FAERS Safety Report 23107094 (Version 2)
Quarter: 2023Q4

REPORT INFORMATION
  Report Type: Spontaneous
  Country: US (occurrence: US)
  Receive Date: 20231026
  Receipt Date: 20231226
  Transmission Date: 20240110
  Serious: No
  Sender: FDA-Public Use
  Company Number: US-ABBVIE-5465667

PATIENT
  Sex: Female

DRUGS (4)
  1. SYNTHROID [Suspect]
     Active Substance: LEVOTHYROXINE SODIUM
     Indication: Product used for unknown indication
     Route: 048
     Dates: start: 2021
  2. SYNTHROID [Suspect]
     Active Substance: LEVOTHYROXINE SODIUM
     Indication: Product used for unknown indication
     Route: 048
     Dates: start: 20231018
  3. TYLENOL [Concomitant]
     Active Substance: ACETAMINOPHEN
     Indication: Product used for unknown indication
  4. AMLODIPINE BESYLATE [Concomitant]
     Active Substance: AMLODIPINE BESYLATE
     Indication: Product used for unknown indication

REACTIONS (16)
  - Mood altered [Not Recovered/Not Resolved]
  - COVID-19 [Recovered/Resolved]
  - Neurotransmitter level altered [Not Recovered/Not Resolved]
  - Sleep deficit [Unknown]
  - Colitis [Unknown]
  - Fatigue [Unknown]
  - Muscle twitching [Unknown]
  - Irritability [Not Recovered/Not Resolved]
  - Thyroid function test abnormal [Unknown]
  - Hypertension [Unknown]
  - Gastrointestinal disorder [Unknown]
  - Muscle spasms [Not Recovered/Not Resolved]
  - Confusional state [Not Recovered/Not Resolved]
  - Vision blurred [Unknown]
  - Glaucoma [Unknown]
  - Ulcer [Unknown]

NARRATIVE: CASE EVENT DATE: 20230101
